FAERS Safety Report 10456319 (Version 1)
Quarter: 2014Q3

REPORT INFORMATION
  Report Type: Spontaneous
  Country: US (occurrence: None)
  Receive Date: 20140915
  Receipt Date: 20140915
  Transmission Date: 20150326
  Serious: No
  Sender: FDA-Public Use
  Company Number: None

PATIENT
  Age: 42 Year
  Sex: Female
  Weight: 82.2 kg

DRUGS (1)
  1. INTRON A [Suspect]
     Active Substance: INTERFERON ALFA-2B
     Dosage: 722 MILLION IU
     Dates: end: 20131031

REACTIONS (3)
  - Upper respiratory tract infection [None]
  - Body temperature increased [None]
  - Neutrophil count decreased [None]

NARRATIVE: CASE EVENT DATE: 20131101
